FAERS Safety Report 18351588 (Version 3)
Quarter: 2020Q4

REPORT INFORMATION
  Report Type: Spontaneous
  Country: PT (occurrence: PT)
  Receive Date: 20201006
  Receipt Date: 20201216
  Transmission Date: 20210114
  Serious: Yes (Other)
  Sender: FDA-Public Use
  Company Number: PT-INDIVIOR LIMITED-INDV-126584-2020

PATIENT
  Age: 51 Year
  Sex: Female

DRUGS (1)
  1. BUPRENORPHINE. [Suspect]
     Active Substance: BUPRENORPHINE
     Indication: PRODUCT USED FOR UNKNOWN INDICATION
     Dosage: UNK
     Route: 048

REACTIONS (7)
  - Skin necrosis [Recovering/Resolving]
  - Hypersensitivity vasculitis [Recovered/Resolved]
  - Blister [Recovered/Resolved]
  - Pustule [Recovering/Resolving]
  - Erythema [Recovering/Resolving]
  - Wound infection staphylococcal [Recovering/Resolving]
  - Intentional product use issue [Recovered/Resolved]
